FAERS Safety Report 8459841 (Version 2)
Quarter: 2017Q1

REPORT INFORMATION
  Report Type: Spontaneous
  Country: US (occurrence: US)
  Receive Date: 20120314
  Receipt Date: 20170309
  Transmission Date: 20170429
  Serious: No
  Sender: FDA-Public Use
  Company Number: US-ASTRAZENECA-2011SE35283

PATIENT
  Age: 3700 Week
  Sex: Male
  Weight: 114.3 kg

DRUGS (5)
  1. TOPROL XL [Suspect]
     Active Substance: METOPROLOL SUCCINATE
     Dosage: DOSE AND FREQUENCY UNKNOWN
     Route: 048
  2. WARFARIN [Concomitant]
     Active Substance: WARFARIN
     Indication: ATRIAL FIBRILLATION
     Route: 048
     Dates: start: 20170112
  3. BRILINTA [Suspect]
     Active Substance: TICAGRELOR
     Indication: STENT PLACEMENT
     Route: 048
     Dates: start: 20170104
  4. INSULIN [Concomitant]
     Active Substance: INSULIN NOS
     Indication: DIABETES MELLITUS
  5. ASPIRIN. [Concomitant]
     Active Substance: ASPIRIN
     Indication: BLOOD VISCOSITY ABNORMAL
     Route: 048
     Dates: start: 201612

REACTIONS (5)
  - International normalised ratio increased [Unknown]
  - Malaise [Not Recovered/Not Resolved]
  - Haemorrhagic diathesis [Unknown]
  - Anxiety [Unknown]
  - Epistaxis [Unknown]

NARRATIVE: CASE EVENT DATE: 201702
